FAERS Safety Report 12405689 (Version 3)
Quarter: 2016Q4

REPORT INFORMATION
  Report Type: Spontaneous
  Country: US (occurrence: US)
  Receive Date: 20160526
  Receipt Date: 20161103
  Transmission Date: 20170207
  Serious: No
  Sender: FDA-Public Use
  Company Number: US-GLAXOSMITHKLINE-US2016067888

PATIENT
  Sex: Female

DRUGS (1)
  1. TRANSDERM SCOP [Suspect]
     Active Substance: SCOPOLAMINE
     Indication: SEROTONIN SYNDROME
     Dosage: UNK
     Dates: start: 201603

REACTIONS (2)
  - Off label use [Unknown]
  - Therapeutic response unexpected [Unknown]
